FAERS Safety Report 12663128 (Version 4)
Quarter: 2017Q1

REPORT INFORMATION
  Report Type: Report from Study
  Country: CA (occurrence: CA)
  Receive Date: 20160818
  Receipt Date: 20170125
  Transmission Date: 20170428
  Serious: Yes (Death, Hospitalization)
  Sender: FDA-Public Use
  Company Number: PHHY2016CA112088

PATIENT
  Age: 84 Year
  Sex: Female

DRUGS (8)
  1. ACLASTA [Suspect]
     Active Substance: ZOLEDRONIC ACID
     Dosage: UNK UNK, Q12MO
     Route: 065
     Dates: start: 20110926
  2. ACLASTA [Suspect]
     Active Substance: ZOLEDRONIC ACID
     Dosage: UNK UNK, Q12MO
     Route: 065
     Dates: start: 20100923
  3. ACLASTA [Suspect]
     Active Substance: ZOLEDRONIC ACID
     Dosage: UNK UNK, Q12MO
     Route: 065
     Dates: start: 20130604
  4. ACLASTA [Suspect]
     Active Substance: ZOLEDRONIC ACID
     Dosage: UNK UNK, Q12MO
     Route: 065
     Dates: start: 20150921
  5. ACLASTA [Suspect]
     Active Substance: ZOLEDRONIC ACID
     Dosage: UNK UNK, Q12MO
     Route: 065
     Dates: start: 20141013
  6. ACLASTA [Suspect]
     Active Substance: ZOLEDRONIC ACID
     Indication: OSTEOPOROSIS
     Dosage: 5 MG, Q12MO
     Route: 042
     Dates: start: 20080815
  7. ACLASTA [Suspect]
     Active Substance: ZOLEDRONIC ACID
     Dosage: UNK UNK, Q12MO
     Route: 065
     Dates: start: 20090922
  8. ACLASTA [Suspect]
     Active Substance: ZOLEDRONIC ACID
     Dosage: UNK UNK, Q12MO
     Route: 065
     Dates: start: 20120927

REACTIONS (3)
  - Death [Fatal]
  - Dementia Alzheimer^s type [Unknown]
  - Dehydration [Unknown]

NARRATIVE: CASE EVENT DATE: 20161123
